FAERS Safety Report 12489428 (Version 1)
Quarter: 2016Q2

REPORT INFORMATION
  Report Type: Spontaneous
  Country: FR (occurrence: FR)
  Receive Date: 20160622
  Receipt Date: 20160622
  Transmission Date: 20160815
  Serious: Yes (Other)
  Sender: FDA-Public Use
  Company Number: FR-UCBSA-2016022395

PATIENT
  Age: 68 Year
  Sex: Female

DRUGS (2)
  1. METOJECT [Suspect]
     Active Substance: METHOTREXATE SODIUM
     Indication: RHEUMATOID ARTHRITIS
     Dosage: 1 DF, ONCE DAILY (QD), STRENGTH- 10MG/ML
     Route: 058
     Dates: start: 1999, end: 20160430
  2. CIMZIA [Suspect]
     Active Substance: CERTOLIZUMAB PEGOL
     Indication: RHEUMATOID ARTHRITIS
     Dosage: 1 DF, ONCE DAILY (QD)
     Route: 058
     Dates: start: 201302, end: 20160430

REACTIONS (4)
  - Herpes zoster oticus [Recovering/Resolving]
  - Facial paralysis [Not Recovered/Not Resolved]
  - Herpes zoster [Recovered/Resolved]
  - Vertigo [Recovering/Resolving]

NARRATIVE: CASE EVENT DATE: 20160430
